FAERS Safety Report 24293202 (Version 1)
Quarter: 2024Q3

REPORT INFORMATION
  Report Type: Spontaneous
  Country: US (occurrence: None)
  Receive Date: 20240906
  Receipt Date: 20240906
  Transmission Date: 20241017
  Serious: No
  Sender: DOMPE FARMACEUTICI
  Company Number: US-FARMAPROD-202308-202312-3617

PATIENT
  Age: 35 Year
  Sex: Female

DRUGS (3)
  1. OXERVATE [Suspect]
     Active Substance: CENEGERMIN-BKBJ
     Indication: Neurotrophic keratopathy
     Route: 047
     Dates: start: 20231128
  2. FISH OIL [Concomitant]
     Active Substance: FISH OIL
     Dosage: 100-160 MG
  3. VITAMIN B12 [Concomitant]
     Active Substance: CYANOCOBALAMIN

REACTIONS (3)
  - Eye pain [Unknown]
  - Foreign body sensation in eyes [Unknown]
  - Eyelid irritation [Unknown]

NARRATIVE: CASE EVENT DATE: 20231101
